FAERS Safety Report 21540233 (Version 1)
Quarter: 2022Q4

REPORT INFORMATION
  Report Type: Other
  Country: US (occurrence: None)
  Receive Date: 20221102
  Receipt Date: 20221102
  Transmission Date: 20230112
  Serious: Yes (Other)
  Sender: FDA-Public Use
  Company Number: US-ROCHE-3197759

PATIENT
  Age: 70 Year
  Sex: Female
  Weight: 71.278 kg

DRUGS (1)
  1. OCREVUS [Suspect]
     Active Substance: OCRELIZUMAB
     Indication: Relapsing-remitting multiple sclerosis
     Dosage: NO, INFUSE 300 DAY 1 + DAY 15 THEN INFUSE 600MG Q 6 MO
     Route: 042
     Dates: end: 202202

REACTIONS (3)
  - Colitis microscopic [Recovering/Resolving]
  - Weight decreased [Recovering/Resolving]
  - Diarrhoea [Recovered/Resolved]

NARRATIVE: CASE EVENT DATE: 20220201
